FAERS Safety Report 9071854 (Version 2)
Quarter: 2013Q2

REPORT INFORMATION
  Report Type: Spontaneous
  Country: IE (occurrence: IE)
  Receive Date: 20130129
  Receipt Date: 20130503
  Transmission Date: 20140414
  Serious: Yes (Other)
  Sender: FDA-Public Use
  Company Number: IE-BAYER-2013-010360

PATIENT
  Sex: Female

DRUGS (1)
  1. MIRENA [Suspect]
     Dosage: 20 MCG/24HR, CONT
     Route: 015
     Dates: start: 2010

REACTIONS (5)
  - Pregnancy with contraceptive device [None]
  - Genital haemorrhage [None]
  - Abdominal pain [None]
  - Drug ineffective [None]
  - Foetal death [None]
